FAERS Safety Report 5568784-7 (Version None)
Quarter: 2007Q4

REPORT INFORMATION
  Report Type: 
  Country: None (occurrence: None)
  Receive Date: 20071220
  Receipt Date: 20070108
  Transmission Date: 20080405
  Serious: No
  Sender: FDA-Public Use
  Company Number: A0634743A

PATIENT
  Sex: Male

DRUGS (10)
  1. AVODART [Suspect]
     Indication: BENIGN PROSTATIC HYPERPLASIA
     Dosage: .5MG PER DAY
     Route: 048
  2. CELEBREX [Concomitant]
  3. AVAPRO [Concomitant]
  4. ISOSORBIDE DINITRATE [Concomitant]
  5. HYDROCHLOROTHIAZIDE [Concomitant]
  6. ZOCOR [Concomitant]
  7. COUMADIN [Concomitant]
  8. AMIODARONE [Concomitant]
  9. FOLIC ACID [Concomitant]
  10. PREDNISONE [Concomitant]

REACTIONS (2)
  - DRUG INEFFECTIVE [None]
  - POLLAKIURIA [None]
